FAERS Safety Report 4450525-8 (Version None)
Quarter: 2004Q3

REPORT INFORMATION
  Report Type: 
  Country: None (occurrence: None)
  Receive Date: 20040913
  Receipt Date: 20030729
  Transmission Date: 20050211
  Serious: No
  Sender: FDA-Public Use
  Company Number: 2004-BP-06296BP(0)

PATIENT
  Age: 74 Year
  Sex: Male

DRUGS (7)
  1. SPIRIVA [Suspect]
     Indication: CHRONIC OBSTRUCTIVE AIRWAYS DISEASE
     Dosage: 18 MCG (18 MCG, 1 OD), IH
     Route: 055
     Dates: start: 20040701, end: 20040729
  2. ATROVENT [Suspect]
     Indication: CHRONIC OBSTRUCTIVE AIRWAYS DISEASE
  3. FLOVENT [Concomitant]
  4. ALBUTEROL [Concomitant]
  5. SEREVENT [Concomitant]
  6. OXYGEN (OXYGEN) [Concomitant]
  7. UROCIT-K (POTASSIUM CITRATE) [Concomitant]

REACTIONS (4)
  - ANURIA [None]
  - BLADDER DISTENSION [None]
  - SWELLING [None]
  - URINARY RETENTION [None]
